FAERS Safety Report 11785405 (Version 1)
Quarter: 2015Q4

REPORT INFORMATION
  Report Type: Spontaneous
  Country: US (occurrence: US)
  Receive Date: 20151130
  Receipt Date: 20151130
  Transmission Date: 20160305
  Serious: No
  Sender: FDA-Public Use
  Company Number: US-JNJFOC-20151021061

PATIENT
  Age: 49 Year
  Sex: Female

DRUGS (1)
  1. TYLENOL PM EXTRA STRENGTH [Suspect]
     Active Substance: ACETAMINOPHEN\DIPHENHYDRAMINE HYDROCHLORIDE
     Indication: SLEEP DISORDER THERAPY
     Dosage: 1X AT NIGHT WHEN NEEDED
     Route: 048

REACTIONS (3)
  - Underdose [Unknown]
  - Product use issue [Unknown]
  - Drug ineffective for unapproved indication [Unknown]
